FAERS Safety Report 19053745 (Version 2)
Quarter: 2021Q3

REPORT INFORMATION
  Report Type: Spontaneous
  Country: PL (occurrence: PL)
  Receive Date: 20210324
  Receipt Date: 20210701
  Transmission Date: 20211014
  Serious: Yes (Other)
  Sender: FDA-Public Use
  Company Number: PL-B.I. PHARMACEUTICALS,INC./RIDGEFIELD-2021-BI-090455

PATIENT
  Age: 55 Year
  Sex: Female
  Weight: 97 kg

DRUGS (6)
  1. VITAMIN D [ERGOCALCIFEROL] [Concomitant]
     Active Substance: ERGOCALCIFEROL
     Indication: SUPPLEMENTATION THERAPY
     Route: 048
  2. LETROXIN [Concomitant]
     Indication: AUTOIMMUNE THYROIDITIS
     Dosage: IN THE MORNING, FOR 20 YEARS
     Route: 048
  3. SYNJARDY [Suspect]
     Active Substance: EMPAGLIFLOZIN\METFORMIN HYDROCHLORIDE
     Indication: TYPE 2 DIABETES MELLITUS
     Dosage: 5 / 1000 MG
     Route: 048
     Dates: start: 202101
  4. NONPRES [Concomitant]
     Active Substance: EPLERENONE
     Indication: HYPERTENSION
     Route: 048
  5. SYNJARDY [Suspect]
     Active Substance: EMPAGLIFLOZIN\METFORMIN HYDROCHLORIDE
     Dosage: 12.5 / 1000 MG
     Route: 048
     Dates: start: 20181108, end: 202101
  6. TULIP [ULIPRISTAL ACETATE] [Concomitant]
     Indication: HYPERCHOLESTEROLAEMIA
     Dosage: IN THE EVENING
     Route: 048

REACTIONS (3)
  - Dehydration [Unknown]
  - Retinal detachment [Recovered/Resolved]
  - Psoriasis [Unknown]

NARRATIVE: CASE EVENT DATE: 20190326
